FAERS Safety Report 5157223-6 (Version None)
Quarter: 2006Q4

REPORT INFORMATION
  Report Type: 
  Country: None (occurrence: None)
  Receive Date: 20061113
  Receipt Date: 20061026
  Transmission Date: 20070319
  Serious: Yes (Other)
  Sender: FDA-Public Use
  Company Number: THYM-11153

PATIENT

DRUGS (6)
  1. THYMOGLOBULIN [Suspect]
     Indication: PREOPERATIVE CARE
     Dosage: 1.5 MG/KG ONCE IV
     Route: 042
  2. THYMOGLOBULIN [Suspect]
     Indication: RENAL TRANSPLANT
     Dosage: 1.5 MG/KG ONCE IV
     Route: 042
  3. TACROLIMUS [Concomitant]
  4. MYCOPHENOLATE MOFETIL [Concomitant]
  5. SOLU-MEDROL [Concomitant]
  6. ZENAPAX [Concomitant]

REACTIONS (2)
  - PROCEDURAL HYPOTENSION [None]
  - PYREXIA [None]
